FAERS Safety Report 17791744 (Version 1)
Quarter: 2020Q2

REPORT INFORMATION
  Report Type: Spontaneous
  Country: US (occurrence: US)
  Receive Date: 20200515
  Receipt Date: 20200515
  Transmission Date: 20200714
  Serious: Yes (Hospitalization)
  Sender: FDA-Public Use
  Company Number: None

PATIENT
  Age: 17 Year
  Sex: Female
  Weight: 78.75 kg

DRUGS (6)
  1. FLUPHENAZINE 2.5 MG TABLET [Suspect]
     Active Substance: FLUPHENAZINE
     Indication: ANXIETY
     Dosage: ?          QUANTITY:1 TABLET(S);?
     Route: 048
     Dates: start: 20200513, end: 20200514
  2. ZOLOFT [Concomitant]
     Active Substance: SERTRALINE HYDROCHLORIDE
  3. PALIPERIDONE ER 3 MG [Suspect]
     Active Substance: PALIPERIDONE
     Indication: BIPOLAR DISORDER
     Dosage: ?          QUANTITY:1 TABLET(S);?
     Route: 048
     Dates: start: 20200115, end: 20200303
  4. JUNEL FE 1/20 [Concomitant]
     Active Substance: ETHINYL ESTRADIOL\NORETHINDRONE ACETATE
  5. FLUPHENAZINE 2.5 MG TABLET [Suspect]
     Active Substance: FLUPHENAZINE
     Indication: BIPOLAR DISORDER
     Dosage: ?          QUANTITY:1 TABLET(S);?
     Route: 048
     Dates: start: 20200513, end: 20200514
  6. PALIPERIDONE ER 3 MG [Suspect]
     Active Substance: PALIPERIDONE
     Indication: ANXIETY
     Dosage: ?          QUANTITY:1 TABLET(S);?
     Route: 048
     Dates: start: 20200115, end: 20200303

REACTIONS (8)
  - Trismus [None]
  - Speech disorder [None]
  - Pain in jaw [None]
  - Vision blurred [None]
  - Swollen tongue [None]
  - Lactation disorder [None]
  - Muscular weakness [None]
  - Dysstasia [None]

NARRATIVE: CASE EVENT DATE: 20200514
